FAERS Safety Report 8841618 (Version 2)
Quarter: 2015Q4

REPORT INFORMATION
  Report Type: Report from Study
  Country: GB (occurrence: GB)
  Receive Date: 20121015
  Receipt Date: 20151104
  Transmission Date: 20160305
  Serious: Yes (Hospitalization)
  Sender: FDA-Public Use
  Company Number: GB-ASTRAZENECA-2012SE76662

PATIENT
  Age: 24032 Day
  Sex: Male

DRUGS (5)
  1. VANDETANIB. [Suspect]
     Active Substance: VANDETANIB
     Indication: PANCREATIC CARCINOMA METASTATIC
     Route: 048
     Dates: start: 20120618, end: 20120927
  2. BUSCOPAN [Concomitant]
     Active Substance: BUTYLSCOPOLAMINE BROMIDE
     Indication: ABDOMINAL PAIN
     Dates: start: 20120921, end: 20120926
  3. GEMCITABINE [Suspect]
     Active Substance: GEMCITABINE\GEMCITABINE HYDROCHLORIDE
     Indication: PANCREATIC CARCINOMA METASTATIC
     Dosage: DOSE REDUCED
     Route: 042
     Dates: start: 20120702, end: 20120926
  4. BUSCOPAN [Concomitant]
     Active Substance: BUTYLSCOPOLAMINE BROMIDE
     Indication: CONSTIPATION
     Dates: start: 20120921, end: 20120926
  5. GEMCITABINE [Suspect]
     Active Substance: GEMCITABINE\GEMCITABINE HYDROCHLORIDE
     Indication: PANCREATIC CARCINOMA METASTATIC
     Route: 042
     Dates: start: 20120618

REACTIONS (1)
  - Hypotension [Not Recovered/Not Resolved]

NARRATIVE: CASE EVENT DATE: 20120927
